FAERS Safety Report 4340643-7 (Version None)
Quarter: 2004Q2

REPORT INFORMATION
  Report Type: 
  Country: None (occurrence: None)
  Receive Date: 20040416
  Receipt Date: 20040416
  Transmission Date: 20050107
  Serious: Yes (Other)
  Sender: FDA-Public Use
  Company Number: None

PATIENT
  Age: 30 Year
  Sex: Female
  Weight: 90.4 kg

DRUGS (7)
  1. CYTARABINE [Suspect]
     Dosage: 380 MG IV
     Route: 042
     Dates: start: 19950916, end: 19950922
  2. CYTARABINE [Suspect]
     Dosage: 380 MG IV
     Route: 042
     Dates: start: 19951030, end: 19951106
  3. CYTARABINE [Suspect]
     Dosage: 380 MG IV
     Route: 042
     Dates: start: 19951230, end: 19951231
  4. DAUNORUBICIN HCL [Suspect]
     Dosage: 86 MG IV
     Route: 042
     Dates: start: 19950916, end: 19950918
  5. VP16 [Suspect]
     Dosage: 3132MG IV
     Route: 042
     Dates: start: 19951229
  6. AZQ [Suspect]
     Dosage: 118MG IV
     Route: 042
     Dates: start: 19960301, end: 19960331
  7. MITOXANTRANE [Concomitant]

REACTIONS (1)
  - CERVIX CARCINOMA STAGE II [None]
